FAERS Safety Report 7595873-8 (Version None)
Quarter: 2011Q3

REPORT INFORMATION
  Report Type: 
  Country: None (occurrence: None)
  Receive Date: 20110707
  Receipt Date: 20110623
  Transmission Date: 20111222
  Serious: Yes (Death, Hospitalization)
  Sender: FDA-Public Use
  Company Number: FR-UCBSA-031481

PATIENT
  Sex: Male

DRUGS (9)
  1. MADOPAR [Concomitant]
     Indication: PARKINSON'S DISEASE
     Dosage: 125 MG 1/2 TABLET
     Route: 048
  2. TANAKAN [Concomitant]
     Route: 048
  3. NEUPRO [Suspect]
     Route: 062
     Dates: start: 20110101, end: 20110101
  4. SINEMET [Concomitant]
     Indication: PARKINSON'S DISEASE
     Dosage: 200 MG/50 MG
     Route: 048
     Dates: start: 20091203
  5. NEUPRO [Suspect]
     Route: 062
     Dates: start: 20110101, end: 20110412
  6. NEUPRO [Suspect]
     Indication: PARKINSON'S DISEASE
     Route: 062
     Dates: start: 20110202, end: 20110101
  7. RISPERDAL [Suspect]
     Indication: AGITATION
     Route: 048
     Dates: start: 20110405, end: 20110412
  8. LORAZEPAM [Concomitant]
     Route: 048
  9. TOCO [Concomitant]
     Route: 048

REACTIONS (5)
  - COMA [None]
  - MALAISE [None]
  - SOMNOLENCE [None]
  - FALL [None]
  - URINARY INCONTINENCE [None]
